FAERS Safety Report 6157188-4 (Version None)
Quarter: 2009Q2

REPORT INFORMATION
  Report Type: 
  Country: None (occurrence: None)
  Receive Date: 20090416
  Receipt Date: 20090410
  Transmission Date: 20091009
  Serious: Yes (Death, Hospitalization, Other)
  Sender: FDA-Public Use
  Company Number: US-CELGENEUS-163-50794-08121613

PATIENT
  Sex: Male
  Weight: 75.8 kg

DRUGS (10)
  1. VIDAZA [Suspect]
     Route: 051
     Dates: start: 20080908, end: 20080912
  2. VIDAZA [Suspect]
     Route: 051
     Dates: start: 20080811, end: 20080819
  3. RED BLOOD CELL TRANSFUSION [Concomitant]
     Indication: PANCYTOPENIA
     Route: 051
     Dates: start: 20080901
  4. PRILOSEC [Concomitant]
     Route: 048
     Dates: end: 20081007
  5. SENOKOT [Concomitant]
     Indication: DRUG USE FOR UNKNOWN INDICATION
     Route: 048
  6. ZOLOFT [Concomitant]
     Indication: DEPRESSION
     Route: 048
     Dates: end: 20081007
  7. VICODIN [Concomitant]
     Indication: PAIN
     Dosage: 5/325MG
     Route: 065
     Dates: end: 20081007
  8. HYDROXYZINE [Concomitant]
     Route: 065
     Dates: end: 20081007
  9. PERI-COLACE [Concomitant]
     Indication: DRUG USE FOR UNKNOWN INDICATION
     Route: 065
  10. ALEVE [Concomitant]
     Indication: DRUG USE FOR UNKNOWN INDICATION
     Route: 065

REACTIONS (7)
  - FEBRILE NEUTROPENIA [None]
  - MYELODYSPLASTIC SYNDROME [None]
  - NEUTROPHIL COUNT DECREASED [None]
  - PNEUMONIA [None]
  - PNEUMONITIS [None]
  - THROMBOCYTOPENIA [None]
  - WHITE BLOOD CELL COUNT DECREASED [None]
